FAERS Safety Report 7250968-3 (Version None)
Quarter: 2011Q1

REPORT INFORMATION
  Report Type: 
  Country: None (occurrence: None)
  Receive Date: 20110128
  Receipt Date: 20110124
  Transmission Date: 20110831
  Serious: Yes (Congenital Anomaly)
  Sender: FDA-Public Use
  Company Number: A0909867A

PATIENT
  Sex: Male
  Weight: 3 kg

DRUGS (3)
  1. DIFLUCAN [Concomitant]
  2. PRENATAL VITAMINS [Concomitant]
  3. PAXIL CR [Suspect]
     Indication: ANXIETY
     Route: 064

REACTIONS (4)
  - CARDIAC MURMUR [None]
  - MICROCEPHALY [None]
  - DRUG EXPOSURE DURING PREGNANCY [None]
  - CRANIOSYNOSTOSIS [None]
